FAERS Safety Report 4321741-0 (Version None)
Quarter: 2004Q1

REPORT INFORMATION
  Report Type: 
  Country: None (occurrence: None)
  Receive Date: 20040322
  Receipt Date: 20031125
  Transmission Date: 20041129
  Serious: No
  Sender: FDA-Public Use
  Company Number: US-BRISTOL-MYERS SQUIBB COMPANY-12447512

PATIENT
  Age: 38 Year
  Sex: Female
  Weight: 58 kg

DRUGS (4)
  1. VAGISTAT-1 [Suspect]
     Indication: VAGINAL MYCOSIS
     Route: 067
     Dates: start: 20031124, end: 20031124
  2. VITAMIN A [Concomitant]
  3. VITAMIN C AND E [Concomitant]
  4. FOLIC ACID [Concomitant]

REACTIONS (2)
  - GENITAL PRURITUS FEMALE [None]
  - VAGINAL BURNING SENSATION [None]
